FAERS Safety Report 25621021 (Version 1)
Quarter: 2025Q3

REPORT INFORMATION
  Report Type: Spontaneous
  Country: CN (occurrence: CN)
  Receive Date: 20250730
  Receipt Date: 20250730
  Transmission Date: 20251020
  Serious: Yes (Hospitalization, Other)
  Sender: AAVIS PHARMACEUTICALS
  Company Number: CN-AVS-000147

PATIENT
  Age: 33 Year
  Sex: Female

DRUGS (2)
  1. HYDROXYCHLOROQUINE [Suspect]
     Active Substance: HYDROXYCHLOROQUINE
     Indication: Systemic lupus erythematosus
     Dosage: APPROXIMATELY 10 MG/(KGD)
     Route: 048
  2. PREDNISONE ACETATE [Concomitant]
     Active Substance: PREDNISONE ACETATE
     Indication: Systemic lupus erythematosus
     Route: 048

REACTIONS (3)
  - Overdose [Unknown]
  - Retinopathy [Recovering/Resolving]
  - Cystoid macular oedema [Recovering/Resolving]
